FAERS Safety Report 19493505 (Version 3)
Quarter: 2021Q4

REPORT INFORMATION
  Report Type: Spontaneous
  Country: DE (occurrence: DE)
  Receive Date: 20210705
  Receipt Date: 20211210
  Transmission Date: 20220304
  Serious: Yes (Other)
  Sender: FDA-Public Use
  Company Number: NVSC2021DE145963

PATIENT
  Age: 54 Year
  Sex: Male

DRUGS (1)
  1. COSENTYX [Suspect]
     Active Substance: SECUKINUMAB
     Indication: Psoriatic arthropathy
     Dosage: 300 MG, QMO
     Route: 065
     Dates: start: 2018, end: 20210420

REACTIONS (6)
  - Cholecystitis [Not Recovered/Not Resolved]
  - Cholestasis [Recovering/Resolving]
  - Blood potassium increased [Recovered/Resolved]
  - Monocyte percentage increased [Recovered/Resolved]
  - Monocyte percentage increased [Unknown]
  - Blood sodium increased [Recovered/Resolved]

NARRATIVE: CASE EVENT DATE: 20210408
